FAERS Safety Report 15370674 (Version 1)
Quarter: 2018Q3

REPORT INFORMATION
  Report Type: Spontaneous
  Country: CY (occurrence: CY)
  Receive Date: 20180911
  Receipt Date: 20180911
  Transmission Date: 20181010
  Serious: Yes (Other)
  Sender: FDA-Public Use
  Company Number: CY-PFIZER INC-2018359647

PATIENT
  Sex: Female

DRUGS (2)
  1. EFFEXOR XR [Suspect]
     Active Substance: VENLAFAXINE HYDROCHLORIDE
     Indication: MUSCULAR WEAKNESS
     Dosage: 75 MG, UNK
     Dates: start: 20180720, end: 201807
  2. REMERON [Suspect]
     Active Substance: MIRTAZAPINE
     Route: 048

REACTIONS (9)
  - Hallucination [Unknown]
  - Drug ineffective for unapproved indication [Unknown]
  - Withdrawal syndrome [Unknown]
  - Crying [Unknown]
  - Fatigue [Unknown]
  - Gastric disorder [Unknown]
  - Hyperhidrosis [Unknown]
  - Nausea [Unknown]
  - Dizziness [Unknown]

NARRATIVE: CASE EVENT DATE: 2018
